FAERS Safety Report 10182736 (Version 1)
Quarter: 2014Q2

REPORT INFORMATION
  Report Type: Spontaneous
  Country: IT (occurrence: None)
  Receive Date: 20140516
  Receipt Date: 20140516
  Transmission Date: 20141212
  Serious: Yes (Hospitalization)
  Sender: FDA-Public Use
  Company Number: 2014AP002548

PATIENT
  Age: 44 Year
  Sex: Female

DRUGS (3)
  1. TOPIRAMATE [Suspect]
     Indication: DRUG ABUSE
     Route: 048
     Dates: start: 20140215, end: 20140215
  2. ALPRAZOLAM [Suspect]
     Indication: DRUG ABUSE
     Route: 048
     Dates: start: 20140215, end: 20140215
  3. SERTRALINE [Suspect]
     Indication: DRUG ABUSE
     Route: 048
     Dates: start: 20140215, end: 20140215

REACTIONS (4)
  - Vomiting [None]
  - Confusional state [None]
  - Agitation [None]
  - Incorrect dose administered [None]
